FAERS Safety Report 6005088-2 (Version None)
Quarter: 2008Q4

REPORT INFORMATION
  Report Type: 
  Country: None (occurrence: None)
  Receive Date: 20081216
  Receipt Date: 20081210
  Transmission Date: 20090506
  Serious: Yes (Other)
  Sender: FDA-Public Use
  Company Number: PHHY2008JP30823

PATIENT
  Sex: Male

DRUGS (2)
  1. VOLTAREN [Suspect]
     Dosage: 50 MG
     Route: 048
     Dates: start: 20080101
  2. MEXITIL [Suspect]
     Dosage: 2 DF
     Route: 048

REACTIONS (3)
  - ACCIDENTAL EXPOSURE [None]
  - BLOOD PRESSURE DECREASED [None]
  - DIZZINESS POSTURAL [None]
